FAERS Safety Report 8828083 (Version 1)
Quarter: 2012Q4

REPORT INFORMATION
  Report Type: 
  Country: CN (occurrence: CN)
  Receive Date: 20121005
  Receipt Date: 20121005
  Transmission Date: 20130627
  Serious: Yes (Other)
  Sender: FDA-Public Use
  Company Number: CN-JNJFOC-20120912593

PATIENT
  Age: 24 Year
  Sex: Male

DRUGS (2)
  1. TYLENOL COLD [Suspect]
     Indication: COUGH
     Route: 048
     Dates: start: 20100116, end: 20100116
  2. TYLENOL COLD [Suspect]
     Indication: HEADACHE
     Route: 048
     Dates: start: 20100116, end: 20100116

REACTIONS (3)
  - Chest discomfort [Recovered/Resolved]
  - Dyspnoea [Recovered/Resolved]
  - Hyperhidrosis [Recovered/Resolved]
